FAERS Safety Report 6782875-4 (Version None)
Quarter: 2010Q2

REPORT INFORMATION
  Report Type: 
  Country: None (occurrence: None)
  Receive Date: 20100617
  Receipt Date: 20100607
  Transmission Date: 20101027
  Serious: Yes (Other)
  Sender: FDA-Public Use
  Company Number: 8047580

PATIENT
  Sex: Male

DRUGS (7)
  1. KEPPRA [Suspect]
     Indication: GRAND MAL CONVULSION
     Dosage: 1000 MG DAILY TRANSPLACENTAL, 2000 MG DAILY TRANSPLACENTAL, 3000 MG, DAILY TRANSPLACENTAL
     Route: 064
     Dates: start: 20061001, end: 20061101
  2. KEPPRA [Suspect]
     Indication: PETIT MAL EPILEPSY
     Dosage: 1000 MG DAILY TRANSPLACENTAL, 2000 MG DAILY TRANSPLACENTAL, 3000 MG, DAILY TRANSPLACENTAL
     Route: 064
     Dates: start: 20061001, end: 20061101
  3. KEPPRA [Suspect]
     Indication: GRAND MAL CONVULSION
     Dosage: 1000 MG DAILY TRANSPLACENTAL, 2000 MG DAILY TRANSPLACENTAL, 3000 MG, DAILY TRANSPLACENTAL
     Route: 064
     Dates: start: 20061101, end: 20070101
  4. KEPPRA [Suspect]
     Indication: PETIT MAL EPILEPSY
     Dosage: 1000 MG DAILY TRANSPLACENTAL, 2000 MG DAILY TRANSPLACENTAL, 3000 MG, DAILY TRANSPLACENTAL
     Route: 064
     Dates: start: 20061101, end: 20070101
  5. KEPPRA [Suspect]
     Indication: GRAND MAL CONVULSION
     Dosage: 1000 MG DAILY TRANSPLACENTAL, 2000 MG DAILY TRANSPLACENTAL, 3000 MG, DAILY TRANSPLACENTAL
     Route: 064
     Dates: start: 20070101, end: 20070515
  6. KEPPRA [Suspect]
     Indication: PETIT MAL EPILEPSY
     Dosage: 1000 MG DAILY TRANSPLACENTAL, 2000 MG DAILY TRANSPLACENTAL, 3000 MG, DAILY TRANSPLACENTAL
     Route: 064
     Dates: start: 20070101, end: 20070515
  7. PRENATAL VITAMINS [Concomitant]

REACTIONS (4)
  - DEVELOPMENTAL DELAY [None]
  - FEEDING DISORDER NEONATAL [None]
  - GROSS MOTOR DELAY [None]
  - MATERNAL DRUGS AFFECTING FOETUS [None]
